FAERS Safety Report 8224511-6 (Version None)
Quarter: 2012Q1

REPORT INFORMATION
  Report Type: 
  Country: None (occurrence: None)
  Receive Date: 20120321
  Receipt Date: 20120319
  Transmission Date: 20120608
  Serious: Yes (Death)
  Sender: FDA-Public Use
  Company Number: US-JNJFOC-20120309437

PATIENT
  Age: 40 Year
  Sex: Male

DRUGS (1)
  1. LISTERINE [Suspect]
     Indication: INTENTIONAL DRUG MISUSE
     Route: 048

REACTIONS (4)
  - DEATH [None]
  - CARDIOMEGALY [None]
  - INCORRECT ROUTE OF DRUG ADMINISTRATION [None]
  - INTENTIONAL DRUG MISUSE [None]
